FAERS Safety Report 6895085-7 (Version None)
Quarter: 2010Q3

REPORT INFORMATION
  Report Type: 
  Country: None (occurrence: None)
  Receive Date: 20100730
  Receipt Date: 20100730
  Transmission Date: 20110219
  Serious: Yes (Hospitalization)
  Sender: FDA-Public Use
  Company Number: None

PATIENT
  Age: 63 Year
  Sex: Male
  Weight: 49.4421 kg

DRUGS (2)
  1. ENOXAPARIN SODIUM [Suspect]
     Indication: PULMONARY EMBOLISM
     Dosage: 100 MG BID SQ
     Route: 058
     Dates: start: 20100628, end: 20100705
  2. HEPARIN [Suspect]
     Indication: PULMONARY EMBOLISM
     Dates: start: 20100622, end: 20100628

REACTIONS (2)
  - EPISTAXIS [None]
  - THROMBOCYTOPENIA [None]
